FAERS Safety Report 14011180 (Version 1)
Quarter: 2017Q3

REPORT INFORMATION
  Report Type: Spontaneous
  Country: NG (occurrence: NG)
  Receive Date: 20170926
  Receipt Date: 20170926
  Transmission Date: 20171128
  Serious: Yes (Death)
  Sender: FDA-Public Use
  Company Number: NG-KRKA, D.D., NOVO MESTO-2027669

PATIENT
  Age: 9 Year
  Sex: Female

DRUGS (2)
  1. ENALAPRIL WORLD [Suspect]
     Active Substance: ENALAPRIL
     Indication: NEPHROTIC SYNDROME
  2. PREDNISOLONE. [Suspect]
     Active Substance: PREDNISOLONE

REACTIONS (4)
  - Off label use [Fatal]
  - Disease progression [None]
  - End stage renal disease [None]
  - Haemodialysis complication [None]
